FAERS Safety Report 8848105 (Version 1)
Quarter: 2012Q4

REPORT INFORMATION
  Report Type: Report from Study
  Country: US (occurrence: US)
  Receive Date: 20121018
  Receipt Date: 20121018
  Transmission Date: 20130627
  Serious: No
  Sender: FDA-Public Use
  Company Number: US-VERTEX PHARMACEUTICAL INC.-2012-022127

PATIENT
  Age: 44 Year
  Sex: Male
  Weight: 170 kg

DRUGS (5)
  1. VX-950 [Suspect]
     Indication: HEPATITIS C
     Dosage: 750 mg, tid
     Route: 048
     Dates: start: 20110530
  2. COUMADIN                           /00014802/ [Suspect]
     Indication: ATRIAL FIBRILLATION
     Dosage: 7.5 mg even and 5.0 mg odd days
  3. PEGASYS [Concomitant]
     Indication: HEPATITIS C
     Dosage: 180 ?g, UNK
     Dates: start: 20110530
  4. COPEGUS [Concomitant]
     Indication: HEPATITIS C
     Dosage: 600 mg, UNK
     Dates: start: 20110530
  5. COPEGUS [Concomitant]
     Dosage: 600 mg, qd
     Dates: start: 20110630

REACTIONS (3)
  - Insomnia [Recovered/Resolved]
  - Anaemia [Recovered/Resolved]
  - Drug interaction [Unknown]
